FAERS Safety Report 9479512 (Version 1)
Quarter: 2013Q3

REPORT INFORMATION
  Report Type: Spontaneous
  Country: SE (occurrence: SE)
  Receive Date: 20130827
  Receipt Date: 20130827
  Transmission Date: 20140515
  Serious: Yes (Hospitalization)
  Sender: FDA-Public Use
  Company Number: SE-ACTAVIS-2013-15377

PATIENT
  Age: 82 Year
  Sex: Male

DRUGS (3)
  1. ZOLPIDEM (UNKNOWN) [Suspect]
     Indication: PRODUCT USED FOR UNKNOWN INDICATION
     Dosage: 10 MG, DAILY
     Route: 048
     Dates: start: 20130115, end: 20130227
  2. LOSARTAN [Concomitant]
     Indication: PRODUCT USED FOR UNKNOWN INDICATION
     Route: 065
  3. WARAN [Concomitant]
     Indication: HAEMOLYTIC ANAEMIA
     Route: 065

REACTIONS (1)
  - Confusional state [Recovered/Resolved]
